FAERS Safety Report 8767106 (Version 2)
Quarter: 2012Q4

REPORT INFORMATION
  Report Type: 
  Country: BR (occurrence: BR)
  Receive Date: 20120830
  Receipt Date: 20120830
  Transmission Date: 20130627
  Serious: Yes (Life-Threatening, Hospitalization, Other)
  Sender: FDA-Public Use
  Company Number: PHHY2012BR073771

PATIENT
  Age: 65 Year
  Sex: Male
  Weight: 46.5 kg

DRUGS (8)
  1. FORASEQ [Suspect]
     Dosage: 1 DF, BID
     Dates: start: 20081114, end: 201202
  2. ONBREZ [Suspect]
     Dosage: 1 DF, QD
     Dates: start: 201202
  3. TIOTROPIUM BROMIDE [Concomitant]
     Dosage: 5 ug, QD
  4. SIMVASTATIN [Concomitant]
     Dosage: UNK
  5. CANDESARTAN [Concomitant]
     Dosage: UNK
  6. ATACAND [Concomitant]
     Dosage: UNK
     Dates: start: 20081114
  7. SPIRIVA [Concomitant]
     Dosage: 2 (jet in the morning)
  8. BAMIFIX [Concomitant]
     Dosage: 1 DF, BID

REACTIONS (10)
  - Infection [Recovered/Resolved]
  - Sepsis [Recovered/Resolved]
  - Acute respiratory failure [Recovered/Resolved]
  - Chronic obstructive pulmonary disease [Recovered/Resolved]
  - Productive cough [Recovered/Resolved]
  - Hypotonia [Recovered/Resolved]
  - Blood glucose increased [Recovered/Resolved]
  - Generalised oedema [Recovered/Resolved]
  - Diarrhoea [Recovered/Resolved]
  - Weight decreased [Recovered/Resolved]
